FAERS Safety Report 18189212 (Version 1)
Quarter: 2020Q3

REPORT INFORMATION
  Report Type: Spontaneous
  Country: US (occurrence: US)
  Receive Date: 20200824
  Receipt Date: 20200824
  Transmission Date: 20201103
  Serious: No
  Sender: FDA-Public Use
  Company Number: US-PERRIGO-20US001101

PATIENT
  Age: 71 Year
  Sex: Male
  Weight: 77.1 kg

DRUGS (1)
  1. NICOTINE POLACRILEX [Suspect]
     Active Substance: NICOTINE
     Indication: WRONG PRODUCT ADMINISTERED
     Dosage: 2 MG, SINGLE
     Route: 048
     Dates: start: 20200117, end: 20200117

REACTIONS (2)
  - Wrong product administered [Recovered/Resolved]
  - Incorrect route of product administration [Recovered/Resolved]

NARRATIVE: CASE EVENT DATE: 20200117
